FAERS Safety Report 8990822 (Version 1)
Quarter: 2012Q4

REPORT INFORMATION
  Report Type: Spontaneous
  Country: US (occurrence: None)
  Receive Date: 20121226
  Receipt Date: 20121226
  Transmission Date: 20130627
  Serious: Yes (Other)
  Sender: FDA-Public Use
  Company Number: None

PATIENT
  Age: 80 Year
  Sex: Male
  Weight: 110 kg

DRUGS (1)
  1. OCTAGAM [Suspect]
     Indication: NEUROPATHY
     Dosage: 55gm weekly IV Drip
     Route: 041
     Dates: start: 20121205, end: 20121221

REACTIONS (4)
  - Rash [None]
  - Rash [None]
  - Eye pruritus [None]
  - Pruritus [None]
